FAERS Safety Report 18237594 (Version 1)
Quarter: 2020Q3

REPORT INFORMATION
  Report Type: Spontaneous
  Country: GB (occurrence: GB)
  Receive Date: 20200907
  Receipt Date: 20200907
  Transmission Date: 20201103
  Serious: Yes (Hospitalization)
  Sender: FDA-Public Use
  Company Number: GB-PFIZER INC-2020342262

PATIENT
  Sex: Female

DRUGS (2)
  1. PALBOCICLIB [Suspect]
     Active Substance: PALBOCICLIB
     Dosage: UNK, FOR 5 MONTHS
     Dates: start: 202004
  2. LETROZOLE. [Concomitant]
     Active Substance: LETROZOLE
     Dosage: UNK, LAST 5 MONTHS
     Dates: start: 202004

REACTIONS (3)
  - Diarrhoea [Unknown]
  - Constipation [Unknown]
  - Colitis [Unknown]
